FAERS Safety Report 16456548 (Version 1)
Quarter: 2019Q3

REPORT INFORMATION
  Report Type: Spontaneous
  Country: PR (occurrence: PR)
  Receive Date: 20190619
  Receipt Date: 20190619
  Transmission Date: 20191004
  Serious: No
  Sender: FDA-Public Use
  Company Number: None

PATIENT
  Age: 81 Year
  Sex: Female
  Weight: 63 kg

DRUGS (2)
  1. MTHYLPREDNISOLONE [Concomitant]
     Dates: start: 20190503, end: 20190507
  2. LEVOFLOXACIN. [Suspect]
     Active Substance: LEVOFLOXACIN
     Indication: PNEUMONIA
     Route: 041
     Dates: start: 20190503, end: 20190506

REACTIONS (1)
  - Hallucination [None]

NARRATIVE: CASE EVENT DATE: 20190506
